FAERS Safety Report 18087811 (Version 1)
Quarter: 2020Q3

REPORT INFORMATION
  Report Type: Spontaneous
  Country: US (occurrence: US)
  Receive Date: 20200729
  Receipt Date: 20200729
  Transmission Date: 20201103
  Serious: Yes (Life-Threatening, Hospitalization)
  Sender: FDA-Public Use
  Company Number: US-PFIZER INC-2020287204

PATIENT
  Age: 47 Year
  Sex: Male

DRUGS (1)
  1. AMLODIPINE BESILATE [Suspect]
     Active Substance: AMLODIPINE BESYLATE
     Dosage: 145 MG, UNK

REACTIONS (4)
  - Sinus tachycardia [Recovering/Resolving]
  - Intentional overdose [Unknown]
  - Blood pressure systolic decreased [Recovering/Resolving]
  - Mean arterial pressure decreased [Recovering/Resolving]
